FAERS Safety Report 6082165-1 (Version None)
Quarter: 2009Q1

REPORT INFORMATION
  Report Type: 
  Country: None (occurrence: None)
  Receive Date: 20090218
  Receipt Date: 20090211
  Transmission Date: 20090719
  Serious: Yes (Congenital Anomaly)
  Sender: FDA-Public Use
  Company Number: A0747560A

PATIENT
  Sex: Female

DRUGS (5)
  1. PAXIL [Suspect]
     Indication: DEPRESSION
     Dosage: 20MG TWICE PER DAY
     Dates: start: 19980101, end: 20020101
  2. DILANTIN [Concomitant]
  3. KEPPRA [Concomitant]
  4. FOLIC ACID [Concomitant]
  5. VITAMIN TAB [Concomitant]

REACTIONS (2)
  - CONGENITAL SCOLIOSIS [None]
  - DRUG EXPOSURE DURING PREGNANCY [None]
